FAERS Safety Report 5239010-3 (Version None)
Quarter: 2007Q1

REPORT INFORMATION
  Report Type: 
  Country: None (occurrence: None)
  Receive Date: 20061208
  Receipt Date: 20050615
  Transmission Date: 20070707
  Serious: Yes (Other)
  Sender: FDA-Public Use
  Company Number: 2005UW09156

PATIENT
  Age: 61 Year
  Sex: Male
  Weight: 89.811 kg

DRUGS (6)
  1. CRESTOR [Suspect]
     Indication: CARDIAC DISORDER
     Dosage: 5 MG PO
     Route: 048
     Dates: start: 20050401
  2. ASPIRIN [Concomitant]
  3. BUSPIRONE HCL [Concomitant]
  4. LEXAPRO [Concomitant]
  5. LOTREL [Concomitant]
  6. BENAZEPRIL HYDROCHLORIDE [Concomitant]

REACTIONS (1)
  - EPISTAXIS [None]
